FAERS Safety Report 9160182 (Version 2)
Quarter: 2013Q2

REPORT INFORMATION
  Report Type: Spontaneous
  Country: HR (occurrence: None)
  Receive Date: 20130219
  Receipt Date: 20130520
  Transmission Date: 20140414
  Serious: Yes (Other)
  Sender: FDA-Public Use
  Company Number: 7193567

PATIENT
  Age: 32 Year
  Sex: Female

DRUGS (2)
  1. EUTHYROX (LEVOTHYROXINE SODIUM)(TABLET)(LEVOTHYROXINE SODIUM) [Suspect]
     Indication: HYPOTHYROIDISM
     Route: 048
     Dates: start: 20120801, end: 20130129
  2. TOPAMAX (TOPIRAMATE) [Suspect]
     Indication: EPILEPSY
     Dates: start: 2009

REACTIONS (2)
  - Polyneuropathy [None]
  - Skin discomfort [None]
